FAERS Safety Report 11145596 (Version 2)
Quarter: 2016Q3

REPORT INFORMATION
  Report Type: Report from Study
  Country: US (occurrence: US)
  Receive Date: 20150528
  Receipt Date: 20160916
  Transmission Date: 20161109
  Serious: Yes (Other)
  Sender: FDA-Public Use
  Company Number: US-SA-2015SA072586

PATIENT
  Age: 55 Year
  Sex: Male

DRUGS (1)
  1. FABRAZYME [Suspect]
     Active Substance: AGALSIDASE BETA
     Indication: FABRY^S DISEASE
     Route: 042
     Dates: start: 20090226

REACTIONS (5)
  - Bladder cancer [Recovering/Resolving]
  - Bladder disorder [Recovering/Resolving]
  - Dyspepsia [Recovering/Resolving]
  - Heart valve incompetence [Recovering/Resolving]
  - Bladder obstruction [Recovering/Resolving]

NARRATIVE: CASE EVENT DATE: 201501
